FAERS Safety Report 7973989-1 (Version None)
Quarter: 2011Q4

REPORT INFORMATION
  Report Type: 
  Country: None (occurrence: None)
  Receive Date: 20111213
  Receipt Date: 20111206
  Transmission Date: 20120403
  Serious: No
  Sender: FDA-Public Use
  Company Number: US-VIIV HEALTHCARE LIMITED-A0940952A

PATIENT
  Sex: Male
  Weight: 3.9 kg

DRUGS (5)
  1. KALETRA [Suspect]
     Indication: ANTIRETROVIRAL THERAPY
     Dosage: 4TAB PER DAY
     Route: 064
     Dates: start: 20110505
  2. ISENTRESS [Suspect]
     Indication: ANTIVIRAL TREATMENT
     Dosage: 800MGD PER DAY
     Route: 064
     Dates: start: 20110606
  3. RETROVIR [Suspect]
     Indication: ANTIVIRAL TREATMENT
     Dosage: 1MGKH PER DAY
     Route: 064
     Dates: start: 20110704, end: 20110706
  4. RETROVIR [Suspect]
     Indication: ANTIRETROVIRAL THERAPY
     Dosage: 2MGKH PER DAY
     Route: 064
     Dates: start: 20110704, end: 20110704
  5. COMBIVIR [Suspect]
     Indication: ANTIRETROVIRAL THERAPY
     Dosage: 2TAB PER DAY
     Route: 064
     Dates: start: 20110505

REACTIONS (2)
  - NO ADVERSE EVENT [None]
  - FOETAL EXPOSURE DURING PREGNANCY [None]
